FAERS Safety Report 20692670 (Version 3)
Quarter: 2022Q2

REPORT INFORMATION
  Report Type: Report from Study
  Country: US (occurrence: US)
  Receive Date: 20220409
  Receipt Date: 20220509
  Transmission Date: 20220721
  Serious: No
  Sender: FDA-Public Use
  Company Number: US-NOVARTISTESTPH-NVSC2022US080362

PATIENT
  Age: 55 Year
  Sex: Female

DRUGS (2)
  1. MAYZENT [Suspect]
     Active Substance: SIPONIMOD
     Indication: Product used for unknown indication
     Dosage: UNK UNK, QD
     Route: 048
     Dates: start: 20220321, end: 20220407
  2. MAYZENT [Suspect]
     Active Substance: SIPONIMOD
     Indication: Multiple sclerosis

REACTIONS (5)
  - Urinary tract infection [Recovering/Resolving]
  - Urine odour abnormal [Recovering/Resolving]
  - Fatigue [Recovering/Resolving]
  - Toothache [Recovering/Resolving]
  - Body temperature fluctuation [Recovering/Resolving]

NARRATIVE: CASE EVENT DATE: 20220323
